FAERS Safety Report 8421759-2 (Version None)
Quarter: 2012Q2

REPORT INFORMATION
  Report Type: 
  Country: None (occurrence: None)
  Receive Date: 20120608
  Receipt Date: 20120528
  Transmission Date: 20120825
  Serious: Yes (Other)
  Sender: FDA-Public Use
  Company Number: IT-BRISTOL-MYERS SQUIBB COMPANY-16639387

PATIENT
  Age: 48 Year
  Sex: Female

DRUGS (7)
  1. VIREAD [Suspect]
     Indication: HIV INFECTION
     Route: 048
     Dates: start: 20030304, end: 20120127
  2. EPIVIR [Suspect]
     Indication: HIV INFECTION
     Route: 048
     Dates: start: 20020304, end: 20120127
  3. LEVOPRAID [Concomitant]
  4. DIBASE [Concomitant]
  5. ESCITALOPRAM [Concomitant]
  6. LORAZEPAM [Concomitant]
  7. REYATAZ [Suspect]
     Indication: HIV INFECTION
     Route: 048
     Dates: start: 20090409, end: 20120127

REACTIONS (1)
  - GLOMERULAR FILTRATION RATE DECREASED [None]
